FAERS Safety Report 9193140 (Version 1)
Quarter: 2013Q1

REPORT INFORMATION
  Report Type: Spontaneous
  Country: US (occurrence: None)
  Receive Date: 20130318
  Receipt Date: 20130318
  Transmission Date: 20140127
  Serious: Yes (Hospitalization)
  Sender: FDA-Public Use
  Company Number: 2013035000

PATIENT
  Sex: Female
  Weight: 59.88 kg

DRUGS (18)
  1. PRIVIGEN (IMMUNE GLOBULIN INTRAVENOUS (HUMAN( 10% LIQUID) [Suspect]
     Indication: IMMUNODEFICIENCY COMMON VARIABLE
     Dosage: 30 G 1X/3  WEEKS INTRAVENOUS
     Route: 042
     Dates: start: 20130218, end: 20130218
  2. PRIVIGEN (IMMUNE GLOBULIN INTRAVENOUS (HUMAN( 10% LIQUID) [Suspect]
     Indication: IMMUNODEFICIENCY
     Dosage: 30 G 1X/3  WEEKS INTRAVENOUS
     Route: 042
     Dates: start: 20130218, end: 20130218
  3. EXPECTORANT (MIST. EXPECTORANS /00291401/) [Concomitant]
  4. SENNA-S (SENOKOT-S) [Concomitant]
  5. METHOTREXATE (METHOTREXATE) [Concomitant]
  6. HYDROCHLOROQUINE (HYDROXYCHLOROQUINE) [Concomitant]
  7. LISINOPRIL (LISINOPRIL) [Concomitant]
  8. DIPHENHYDRAMINE (DIPHENHYDRAMINE) [Concomitant]
  9. EPINEPHRINE (EPINEPHRINE) [Concomitant]
  10. SODIUM CHLORIDE (SODIUM CHLORIDE) [Concomitant]
  11. CELEBREX (CELECOXIB) [Concomitant]
  12. POTASSIUM (POTASSIUM) [Concomitant]
  13. FOLIC ACID (FOLIC ACID) [Concomitant]
  14. ALPRAZOLAM (ALPRAZOLAM) [Concomitant]
  15. TRIAMTERENE-HCTZ (DYAZIDE) [Concomitant]
  16. QUALAQUIN (QUININE SULFATE) [Concomitant]
  17. MAGNEIUM GLYCINATE (ALUMINIUM GLYCINATE W/MAGNESIUM HYDROXIDEKDKDKDKDKD [Concomitant]
  18. EVOXAC (CEVIMELINE HYDROCHLORIDE) [Concomitant]

REACTIONS (3)
  - Proctitis fungal [None]
  - Genital infection fungal [None]
  - Rectal prolapse [None]
